FAERS Safety Report 5572435-5 (Version None)
Quarter: 2007Q4

REPORT INFORMATION
  Report Type: 
  Country: None (occurrence: None)
  Receive Date: 20071222
  Receipt Date: 20071212
  Transmission Date: 20080405
  Serious: Yes (Hospitalization)
  Sender: FDA-Public Use
  Company Number: SE-PFIZER INC-2007096268

PATIENT
  Sex: Male
  Weight: 118 kg

DRUGS (8)
  1. EPLERENONE [Suspect]
     Indication: CARDIAC FAILURE
     Route: 048
     Dates: start: 20061207, end: 20071026
  2. BISOPROLOL [Concomitant]
     Route: 048
     Dates: start: 20051001
  3. VALSARTAN [Concomitant]
     Route: 048
     Dates: start: 20051101, end: 20071026
  4. ACETYLSALICYLIC ACID SRT [Concomitant]
     Route: 048
     Dates: start: 19950501
  5. SIMVASTATIN [Concomitant]
     Route: 048
     Dates: start: 20010901
  6. RAMIPRIL [Concomitant]
     Route: 048
     Dates: start: 20061001
  7. FUROSEMIDE [Concomitant]
     Route: 048
     Dates: start: 20061101
  8. TRIOBE [Concomitant]
     Route: 048
     Dates: start: 20031201

REACTIONS (3)
  - CARDIAC FAILURE CHRONIC [None]
  - CONDITION AGGRAVATED [None]
  - GOUT [None]
